FAERS Safety Report 9628813 (Version 1)
Quarter: 2013Q4

REPORT INFORMATION
  Report Type: Spontaneous
  Country: US (occurrence: US)
  Receive Date: 20131017
  Receipt Date: 20131017
  Transmission Date: 20140711
  Serious: No
  Sender: FDA-Public Use
  Company Number: US-GLAXOSMITHKLINE-A1024740A

PATIENT
  Age: 56 Year
  Sex: Female

DRUGS (4)
  1. CEFTIN [Suspect]
     Indication: TOOTH ABSCESS
     Dosage: 250MG TWICE PER DAY
     Route: 048
     Dates: start: 20130512
  2. NEXIUM [Concomitant]
  3. CELEXA [Concomitant]
  4. ZETIA [Concomitant]

REACTIONS (2)
  - Pruritus [Recovering/Resolving]
  - Urticaria [Unknown]
